FAERS Safety Report 4269713-9 (Version None)
Quarter: 2004Q1

REPORT INFORMATION
  Report Type: 
  Country: None (occurrence: None)
  Receive Date: 20040112
  Receipt Date: 20040105
  Transmission Date: 20041129
  Serious: Yes (Other)
  Sender: FDA-Public Use
  Company Number: US-JNJFOC-20040100897

PATIENT
  Sex: Male

DRUGS (1)
  1. TOPAMAX [Suspect]
     Indication: DRUG USE FOR UNKNOWN INDICATION
     Dosage: ORAL
     Route: 048
     Dates: end: 20031201

REACTIONS (3)
  - INTERVERTEBRAL DISC DISORDER [None]
  - SPINAL FUSION ACQUIRED [None]
  - UNEXPECTED THERAPEUTIC DRUG EFFECT [None]
